FAERS Safety Report 7417476-8 (Version None)
Quarter: 2011Q2

REPORT INFORMATION
  Report Type: 
  Country: None (occurrence: None)
  Receive Date: 20110408
  Receipt Date: 20110328
  Transmission Date: 20111010
  Serious: Yes (Hospitalization)
  Sender: FDA-Public Use
  Company Number: TRP_07632_2011

PATIENT
  Sex: Male
  Weight: 100.2449 kg

DRUGS (13)
  1. IBUPROFEN [Concomitant]
  2. SALINE /00075401/ [Concomitant]
  3. RIBAVIRIN [Suspect]
     Indication: HEPATITIS C
     Dosage: (600 MG BID ORAL)
     Route: 048
     Dates: start: 20100717
  4. PEGINTERFERON ALFA-2A [Suspect]
     Indication: HEPATITIS C
     Dosage: (180 UG 1X/WEEK SUBCUTANEOUS)
     Route: 058
     Dates: start: 20100717
  5. RANITIDINE HYDROCHLORIDE [Concomitant]
  6. FLORAJEN 3 [Concomitant]
  7. ABT-333 [Suspect]
     Indication: HEPATITIS C
     Dosage: (400 MG BID ORAL)
     Route: 048
     Dates: start: 20100714, end: 20101005
  8. HYDROCORTISONE [Concomitant]
  9. ZOLPIDEM TARTRATE [Concomitant]
  10. MOXIFLOXACIN HYDROCHLORIDE [Concomitant]
  11. MULTIVITAMIN FOR MEN [Concomitant]
  12. PARACETAMOL [Concomitant]
  13. BENADRYL [Concomitant]

REACTIONS (2)
  - PALPITATIONS [None]
  - ATRIAL FIBRILLATION [None]
